FAERS Safety Report 13450428 (Version 1)
Quarter: 2017Q2

REPORT INFORMATION
  Report Type: Spontaneous
  Country: DE (occurrence: DE)
  Receive Date: 20170418
  Receipt Date: 20170418
  Transmission Date: 20170830
  Serious: Yes (Hospitalization, Other)
  Sender: FDA-Public Use
  Company Number: DE-BRISTOL-MYERS SQUIBB COMPANY-BMS-2017-032522

PATIENT
  Age: 16 Year
  Sex: Male

DRUGS (1)
  1. ABILIFY [Suspect]
     Active Substance: ARIPIPRAZOLE
     Indication: SUBSTANCE-INDUCED PSYCHOTIC DISORDER
     Dosage: 15 MG, UNK
     Route: 065

REACTIONS (2)
  - Mania [Recovered/Resolved]
  - Product use in unapproved indication [Unknown]
